FAERS Safety Report 7553599-0 (Version None)
Quarter: 2011Q2

REPORT INFORMATION
  Report Type: 
  Country: None (occurrence: None)
  Receive Date: 20110614
  Receipt Date: 20110614
  Transmission Date: 20111010
  Serious: No
  Sender: FDA-Public Use
  Company Number: None

PATIENT
  Age: 87 Year
  Sex: Male
  Weight: 85.2762 kg

DRUGS (1)
  1. SIMVASTATIN [Suspect]
     Indication: BLOOD CHOLESTEROL INCREASED
     Dosage: 40MG DAILY PO
     Route: 048
     Dates: start: 19950101, end: 20110101

REACTIONS (4)
  - GAIT DISTURBANCE [None]
  - DYSSTASIA [None]
  - FATIGUE [None]
  - MYALGIA [None]
